FAERS Safety Report 10331300 (Version 1)
Quarter: 2014Q3

REPORT INFORMATION
  Report Type: Spontaneous
  Country: US (occurrence: US)
  Receive Date: 20140722
  Receipt Date: 20140722
  Transmission Date: 20150326
  Serious: No
  Sender: FDA-Public Use
  Company Number: US-TEVA-454048USA

PATIENT
  Sex: Male

DRUGS (12)
  1. JANTOVEN [Interacting]
     Active Substance: WARFARIN SODIUM
     Dates: start: 2011, end: 20131112
  2. FLUCONAZOLE. [Suspect]
     Active Substance: FLUCONAZOLE
     Indication: FUNGAL INFECTION
     Dates: start: 20131104, end: 20131111
  3. CELEBREX [Concomitant]
     Active Substance: CELECOXIB
  4. LEVOTHYROXINE SODIUM. [Concomitant]
     Active Substance: LEVOTHYROXINE SODIUM
  5. GLUCOSAMINE SULFATE W/CHONDROITIN [Concomitant]
  6. FOLIC ACID. [Concomitant]
     Active Substance: FOLIC ACID
  7. MAGNESIUM [Concomitant]
     Active Substance: MAGNESIUM
  8. COQ10 [Concomitant]
     Active Substance: UBIDECARENONE
  9. PRILOSEC [Concomitant]
     Active Substance: OMEPRAZOLE MAGNESIUM
  10. ALLOPURINOL. [Concomitant]
     Active Substance: ALLOPURINOL
  11. LIPITOR [Concomitant]
     Active Substance: ATORVASTATIN CALCIUM
  12. TAMSULOSIN HYDROCHLORIDE. [Concomitant]
     Active Substance: TAMSULOSIN HYDROCHLORIDE

REACTIONS (2)
  - Drug interaction [Unknown]
  - International normalised ratio abnormal [Unknown]
